FAERS Safety Report 9346111 (Version 1)
Quarter: 2013Q2

REPORT INFORMATION
  Report Type: Spontaneous
  Country: NL (occurrence: NL)
  Receive Date: 20130613
  Receipt Date: 20130613
  Transmission Date: 20140414
  Serious: Yes (Hospitalization, Other)
  Sender: FDA-Public Use
  Company Number: NL-ELI_LILLY_AND_COMPANY-NL201306001792

PATIENT
  Age: 57 Year
  Sex: Male
  Weight: 80 kg

DRUGS (10)
  1. PROZAC [Suspect]
     Indication: DEPRESSED MOOD
     Dosage: 20 MG, QD
     Dates: start: 19900201
  2. DIAZEPAM [Interacting]
     Indication: ANXIETY
     Dosage: 5 MG, QID
     Dates: start: 20130403
  3. MORPHINE SULPHATE [Interacting]
     Indication: PAIN
     Dosage: 30 MG, WEEKLY (1/W)
     Dates: start: 20130403
  4. TRAMAL [Concomitant]
     Indication: PAIN
     Dosage: 50 MG, QID
     Dates: start: 20130403
  5. BETAHISTINE [Concomitant]
     Indication: MENIERE^S DISEASE
     Dosage: 16 MG, QID
     Dates: start: 20090507
  6. PARACETAMOL [Concomitant]
     Indication: PAIN
     Dosage: 1000 MG, QID
     Dates: start: 20130403
  7. ACETYLSALICYLZUUR [Concomitant]
     Indication: PROPHYLAXIS
     Dosage: 80 MG, QD
     Dates: start: 20120403
  8. METOPROLOL [Concomitant]
     Indication: ARRHYTHMIA
     Dosage: 50 MG, BID
     Dates: start: 20130403
  9. TAMSULOSIN [Concomitant]
     Indication: PROSTATIC DISORDER
     Dosage: 0.4 MG, QD
     Dates: start: 20130403
  10. DICLOFENACUM NATRICUM [Concomitant]
     Indication: PAIN
     Dosage: 2 DF, WEEKLY (1/W)
     Dates: start: 20130403

REACTIONS (4)
  - Hallucination [Not Recovered/Not Resolved]
  - Sedation [Not Recovered/Not Resolved]
  - Withdrawal syndrome [Not Recovered/Not Resolved]
  - Drug interaction [Not Recovered/Not Resolved]
